FAERS Safety Report 16918225 (Version 1)
Quarter: 2019Q4

REPORT INFORMATION
  Report Type: Spontaneous
  Country: GB (occurrence: GB)
  Receive Date: 20191015
  Receipt Date: 20191015
  Transmission Date: 20200122
  Serious: Yes (Life-Threatening, Hospitalization)
  Sender: FDA-Public Use
  Company Number: GB-JNJFOC-20191011199

PATIENT
  Age: 55 Year
  Sex: Male
  Weight: 99 kg

DRUGS (7)
  1. METFORMIN [Concomitant]
     Active Substance: METFORMIN HYDROCHLORIDE
  2. ROSUVASTATIN. [Concomitant]
     Active Substance: ROSUVASTATIN
  3. RAMIPRIL. [Concomitant]
     Active Substance: RAMIPRIL
  4. CANAGLIFLOZIN [Suspect]
     Active Substance: CANAGLIFLOZIN
     Indication: TYPE 2 DIABETES MELLITUS
     Route: 048
     Dates: start: 20190201, end: 20190918
  5. ALLOPURINOL. [Concomitant]
     Active Substance: ALLOPURINOL
  6. GLICLAZIDE [Concomitant]
     Active Substance: GLICLAZIDE
  7. LIRAGLUTIDE [Concomitant]
     Active Substance: LIRAGLUTIDE

REACTIONS (1)
  - Euglycaemic diabetic ketoacidosis [Recovered/Resolved]

NARRATIVE: CASE EVENT DATE: 20190917
